FAERS Safety Report 5721701-9 (Version None)
Quarter: 2008Q2

REPORT INFORMATION
  Report Type: 
  Country: None (occurrence: None)
  Receive Date: 20080429
  Receipt Date: 20070330
  Transmission Date: 20081010
  Serious: No
  Sender: FDA-Public Use
  Company Number: US-ASTRAZENECA-2007UW06530

PATIENT
  Age: 58 Year
  Sex: Male
  Weight: 129.3 kg

DRUGS (3)
  1. NEXIUM [Suspect]
     Indication: GASTROOESOPHAGEAL REFLUX DISEASE
     Route: 048
     Dates: start: 20070101
  2. SEREVENT [Concomitant]
  3. ALEVE [Concomitant]

REACTIONS (1)
  - BLOOD CHOLESTEROL INCREASED [None]
